FAERS Safety Report 7212594-1 (Version None)
Quarter: 2011Q1

REPORT INFORMATION
  Report Type: 
  Country: None (occurrence: None)
  Receive Date: 20110106
  Receipt Date: 20110103
  Transmission Date: 20110831
  Serious: No
  Sender: FDA-Public Use
  Company Number: US-PFIZER INC-2011000717

PATIENT
  Age: 73 Year
  Sex: Male

DRUGS (4)
  1. LISINOPRIL [Concomitant]
  2. LIPITOR [Suspect]
     Dosage: UNK
  3. WARFARIN [Concomitant]
  4. LEVOTHYROXINE SODIUM [Concomitant]

REACTIONS (2)
  - MYALGIA [None]
  - ASTHENIA [None]
